FAERS Safety Report 20006594 (Version 1)
Quarter: 2021Q4

REPORT INFORMATION
  Report Type: Other
  Country: JP (occurrence: JP)
  Receive Date: 20211028
  Receipt Date: 20211028
  Transmission Date: 20220303
  Serious: Yes (Other)
  Sender: FDA-Public Use
  Company Number: JP-ROCHE-2942804

PATIENT

DRUGS (9)
  1. TRASTUZUMAB [Suspect]
     Active Substance: TRASTUZUMAB
     Indication: Salivary gland cancer
     Route: 065
  2. CETUXIMAB [Suspect]
     Active Substance: CETUXIMAB
     Indication: Salivary gland cancer
     Route: 065
  3. PACLITAXEL [Suspect]
     Active Substance: PACLITAXEL
     Indication: Salivary gland cancer
     Route: 065
  4. CARBOPLATIN [Suspect]
     Active Substance: CARBOPLATIN
     Indication: Salivary gland cancer
     Route: 065
  5. DOCETAXEL [Suspect]
     Active Substance: DOCETAXEL
     Indication: Salivary gland cancer
     Route: 065
  6. ABIRATERONE. [Suspect]
     Active Substance: ABIRATERONE ACETATE
     Indication: Salivary gland cancer
     Route: 065
  7. TEGAFUR [Suspect]
     Active Substance: TEGAFUR
     Indication: Salivary gland cancer
     Route: 065
  8. GIMERACIL [Suspect]
     Active Substance: GIMERACIL
     Indication: Salivary gland cancer
     Route: 065
  9. OTERACIL [Suspect]
     Active Substance: OTERACIL
     Indication: Salivary gland cancer
     Route: 065

REACTIONS (30)
  - Blood creatine phosphokinase increased [Unknown]
  - Anaemia [Unknown]
  - Blood alkaline phosphatase increased [Unknown]
  - Hyperkalaemia [Unknown]
  - Cardiac failure [Unknown]
  - Amylase increased [Unknown]
  - Hypokalaemia [Unknown]
  - Aspartate aminotransferase increased [Unknown]
  - Myositis [Unknown]
  - Hyponatraemia [Unknown]
  - Chronic kidney disease [Unknown]
  - Alanine aminotransferase increased [Unknown]
  - Blood creatine increased [Unknown]
  - Gamma-glutamyltransferase increased [Unknown]
  - Hypoalbuminaemia [Unknown]
  - Pneumonitis [Unknown]
  - Hyperthyroidism [Unknown]
  - Hypertriglyceridaemia [Unknown]
  - Activated partial thromboplastin time prolonged [Unknown]
  - Blood lactate dehydrogenase increased [Unknown]
  - Hyperglycaemia [Unknown]
  - Lymphocyte count decreased [Unknown]
  - International normalised ratio increased [Unknown]
  - White blood cell count decreased [Unknown]
  - Platelet count decreased [Unknown]
  - Hypothyroidism [Unknown]
  - Blood cholesterol increased [Unknown]
  - Hyperuricaemia [Unknown]
  - Hypophosphataemia [Unknown]
  - Arthralgia [Unknown]
